FAERS Safety Report 15323119 (Version 3)
Quarter: 2018Q4

REPORT INFORMATION
  Report Type: Spontaneous
  Country: US (occurrence: US)
  Receive Date: 20180827
  Receipt Date: 20181016
  Transmission Date: 20190204
  Serious: No
  Sender: FDA-Public Use
  Company Number: US-PFIZER INC-2018342347

PATIENT
  Age: 56 Year
  Sex: Female
  Weight: 54.88 kg

DRUGS (2)
  1. CHANTIX [Suspect]
     Active Substance: VARENICLINE TARTRATE
     Dosage: 1 MG, 2X/DAY 1 IN THE MORNING AND 1 IN THE EVENING
  2. CHANTIX [Suspect]
     Active Substance: VARENICLINE TARTRATE
     Indication: SMOKING CESSATION THERAPY
     Dosage: UNK
     Dates: start: 201805

REACTIONS (2)
  - Weight increased [Not Recovered/Not Resolved]
  - Blood sodium decreased [Unknown]

NARRATIVE: CASE EVENT DATE: 201806
